FAERS Safety Report 5772090-5 (Version None)
Quarter: 2008Q2

REPORT INFORMATION
  Report Type: 
  Country: None (occurrence: None)
  Receive Date: 20080613
  Receipt Date: 20080603
  Transmission Date: 20081010
  Serious: Yes (Other)
  Sender: FDA-Public Use
  Company Number: FR-GILEAD-2008-0014960

PATIENT
  Sex: Female
  Weight: 62 kg

DRUGS (4)
  1. TRUVADA [Suspect]
     Indication: HIV INFECTION
     Route: 048
     Dates: start: 20071115
  2. SUSTIVA [Concomitant]
  3. COMBIVIR [Concomitant]
  4. VIRACEPT [Concomitant]

REACTIONS (3)
  - ARTHRALGIA [None]
  - BURNING SENSATION [None]
  - PARAESTHESIA [None]
